FAERS Safety Report 6861929-8 (Version None)
Quarter: 2010Q3

REPORT INFORMATION
  Report Type: 
  Country: None (occurrence: None)
  Receive Date: 20100720
  Receipt Date: 20100720
  Transmission Date: 20110219
  Serious: Yes (Life-Threatening, Hospitalization)
  Sender: FDA-Public Use
  Company Number: None

PATIENT
  Age: 17 Year
  Sex: Male
  Weight: 104.3273 kg

DRUGS (1)
  1. ACCUTANE [Suspect]
     Dosage: HIGHEST DOSE

REACTIONS (5)
  - ANGER [None]
  - EXOSTOSIS [None]
  - GOUT [None]
  - IMMUNE SYSTEM DISORDER [None]
  - WHITE BLOOD CELL COUNT DECREASED [None]
